FAERS Safety Report 15697080 (Version 9)
Quarter: 2020Q4

REPORT INFORMATION
  Report Type: Spontaneous
  Country: US (occurrence: US)
  Receive Date: 20181206
  Receipt Date: 20201204
  Transmission Date: 20210113
  Serious: No
  Sender: FDA-Public Use
  Company Number: US-PFIZER INC-2018497442

PATIENT
  Age: 70 Year
  Sex: Female
  Weight: 59 kg

DRUGS (2)
  1. TIMOPTIC [Concomitant]
     Active Substance: TIMOLOL MALEATE
     Indication: GLAUCOMA
     Dosage: ONE DROP IN EACH EYE, TWICE DAILY (IN AM AND IN PM)
  2. LATANOPROST. [Suspect]
     Active Substance: LATANOPROST
     Indication: GLAUCOMA
     Dosage: 1 GTT, 1X/DAY (OU QHS (EVERY BEDTIME))
     Route: 047
     Dates: start: 201309, end: 201311

REACTIONS (12)
  - Eye pruritus [Unknown]
  - Eye pain [Unknown]
  - Eyelids pruritus [Unknown]
  - Foreign body sensation in eyes [Unknown]
  - Eyelid pain [Unknown]
  - Dry eye [Unknown]
  - Dermatitis [Recovered/Resolved]
  - Drug hypersensitivity [Not Recovered/Not Resolved]
  - Ocular hyperaemia [Unknown]
  - Lacrimation increased [Unknown]
  - Eye swelling [Unknown]
  - Eye irritation [Unknown]

NARRATIVE: CASE EVENT DATE: 201309
